FAERS Safety Report 8899007 (Version 2)
Quarter: 2012Q4

REPORT INFORMATION
  Report Type: 
  Country: US (occurrence: US)
  Receive Date: 20121109
  Receipt Date: 20121119
  Transmission Date: 20130627
  Serious: Yes (Other)
  Sender: FDA-Public Use
  Company Number: US-MERCK-1210USA011243

PATIENT
  Age: 60 Year
  Sex: Female

DRUGS (1)
  1. PEGINTRON [Suspect]
     Indication: HEPATITIS C
     Dosage: 120 Microgram, qd
     Route: 058
     Dates: start: 20110730

REACTIONS (2)
  - Anaemia [Unknown]
  - Inappropriate schedule of drug administration [Unknown]
